FAERS Safety Report 19353166 (Version 2)
Quarter: 2021Q3

REPORT INFORMATION
  Report Type: Spontaneous
  Country: JP (occurrence: JP)
  Receive Date: 20210531
  Receipt Date: 20210804
  Transmission Date: 20211014
  Serious: Yes (Hospitalization)
  Sender: FDA-Public Use
  Company Number: NVSJ2021JP007938

PATIENT
  Age: 29 Year
  Sex: Male

DRUGS (2)
  1. NEXIUM [Concomitant]
     Active Substance: ESOMEPRAZOLE MAGNESIUM
     Indication: GASTROOESOPHAGEAL REFLUX DISEASE
     Dosage: UNK
     Route: 065
  2. COSENTYX [Suspect]
     Active Substance: SECUKINUMAB
     Indication: PSORIASIS
     Dosage: UNK
     Route: 058
     Dates: start: 20201216

REACTIONS (5)
  - Inflammatory bowel disease [Unknown]
  - Pyrexia [Unknown]
  - Liver disorder [Unknown]
  - Eosinophil count increased [Recovered/Resolved]
  - Decreased appetite [Unknown]

NARRATIVE: CASE EVENT DATE: 20210517
